FAERS Safety Report 4342639-8 (Version None)
Quarter: 2004Q2

REPORT INFORMATION
  Report Type: 
  Country: None (occurrence: None)
  Receive Date: 20040421
  Receipt Date: 20040415
  Transmission Date: 20050107
  Serious: Yes (Death, Other)
  Sender: FDA-Public Use
  Company Number: 200411231EU

PATIENT
  Age: 93 Year
  Sex: Male

DRUGS (4)
  1. LASIX [Suspect]
     Indication: HYPERTENSION
     Route: 048
  2. RENITEC [Suspect]
     Indication: HYPERTENSION
     Route: 048
  3. ALBYL-E [Concomitant]
     Route: 048
  4. SELO-ZOK [Concomitant]
     Indication: HYPERTENSION
     Route: 048

REACTIONS (8)
  - BASE EXCESS POSITIVE [None]
  - BLOOD CREATININE INCREASED [None]
  - CARDIAC FAILURE [None]
  - HAEMOGLOBIN DECREASED [None]
  - HYPERKALAEMIA [None]
  - HYPOTENSION [None]
  - RENAL FAILURE [None]
  - TROPONIN T INCREASED [None]
